FAERS Safety Report 9230720 (Version 2)
Quarter: 2013Q3

REPORT INFORMATION
  Report Type: Spontaneous
  Country: JP (occurrence: JP)
  Receive Date: 20130415
  Receipt Date: 20130812
  Transmission Date: 20140515
  Serious: Yes (Hospitalization, Other)
  Sender: FDA-Public Use
  Company Number: JP-GE HEALTHCARE MEDICAL DIAGNOSTICS-OMPQ-NO-1304S-0448

PATIENT
  Age: 70 Year
  Sex: Male

DRUGS (19)
  1. OMNIPAQUE [Suspect]
     Indication: PRODUCT USED FOR UNKNOWN INDICATION
     Route: 042
     Dates: start: 20130326, end: 20130326
  2. OMNIPAQUE [Suspect]
     Indication: DIAGNOSTIC PROCEDURE
  3. PREDONINE [Concomitant]
     Indication: PUSTULAR PSORIASIS
     Route: 048
     Dates: start: 20121005
  4. NEORAL [Concomitant]
  5. TIGASON [Concomitant]
     Indication: PUSTULAR PSORIASIS
     Route: 048
     Dates: start: 20050617
  6. MEVALOTIN [Concomitant]
     Indication: HYPERLIPIDAEMIA
     Route: 048
     Dates: start: 20101105
  7. PLAVIX [Concomitant]
     Indication: ANGINA PECTORIS
     Route: 048
     Dates: start: 20070724
  8. BAYASPIRIN [Concomitant]
     Indication: ANGINA PECTORIS
     Route: 048
     Dates: start: 20070724
  9. URIEF [Concomitant]
     Indication: BENIGN PROSTATIC HYPERPLASIA
     Route: 048
     Dates: start: 20110610
  10. GASTER D [Concomitant]
     Indication: GASTRIC ULCER
     Route: 048
     Dates: start: 20050702
  11. CLARITIN REDITABS [Concomitant]
     Indication: PUSTULAR PSORIASIS
     Route: 048
     Dates: start: 20111122
  12. VITAFANT [Concomitant]
     Indication: HEPATIC CANCER
     Route: 048
     Dates: start: 20120306
  13. NEUROTROPIN [Concomitant]
     Indication: ARTHRALGIA
     Route: 048
     Dates: start: 20120214
  14. LIVACT [Concomitant]
     Indication: HEPATIC CANCER
     Route: 048
     Dates: start: 20120207
  15. PROPIVERINE [Concomitant]
     Indication: BENIGN PROSTATIC HYPERPLASIA
     Route: 048
     Dates: start: 20120426
  16. ALLOPURINOL [Concomitant]
     Indication: HYPERURICAEMIA
     Route: 048
     Dates: start: 20110722
  17. MAGMITT [Concomitant]
     Indication: CONSTIPATION
     Route: 048
     Dates: start: 20120907
  18. GLUFAST [Concomitant]
     Indication: DIABETES MELLITUS
     Route: 048
     Dates: start: 20120606
  19. SELARA [Concomitant]
     Indication: HYPERTENSION
     Route: 048

REACTIONS (1)
  - Pustular psoriasis [Recovered/Resolved]
